FAERS Safety Report 5127142-X (Version None)
Quarter: 2006Q4

REPORT INFORMATION
  Report Type: 
  Country: None (occurrence: None)
  Receive Date: 20061013
  Receipt Date: 20060918
  Transmission Date: 20070319
  Serious: Yes (Death)
  Sender: FDA-Public Use
  Company Number: 2006AC01695

PATIENT
  Age: 71 Year
  Sex: Female

DRUGS (4)
  1. PROPOFOL [Suspect]
     Route: 042
  2. OXYGENATED FLUOROCARBON NUTIRENT EMULSION [Concomitant]
     Indication: CEREBRAL ISCHAEMIA
     Dosage: MEAN HOURLY VOLUME DECREASED AT 20 HRS
     Route: 050
  3. ARTIFICIAL CEREBROSPINAL FLUID (OFNE VEHICLE) [Concomitant]
     Indication: CEREBRAL ISCHAEMIA
     Dosage: APPROXIMATE FLOW RATE AND DURATION
     Route: 050
  4. ARTIFICIAL CEREBROSPINAL FLUID (OFNE VEHICLE) [Concomitant]
     Dosage: WASHOUT PERIOD
     Route: 050

REACTIONS (2)
  - LACTIC ACIDOSIS [None]
  - MULTI-ORGAN FAILURE [None]
